FAERS Safety Report 8557762-1 (Version None)
Quarter: 2012Q3

REPORT INFORMATION
  Report Type: 
  Country: None (occurrence: None)
  Receive Date: 20120801
  Receipt Date: 20120724
  Transmission Date: 20120928
  Serious: Yes (Hospitalization, Other)
  Sender: FDA-Public Use
  Company Number: US-ASTRAZENECA-2011SE70938

PATIENT
  Age: 70 Year
  Sex: Female

DRUGS (3)
  1. CRESTOR [Suspect]
     Route: 048
  2. NEXIUM [Suspect]
     Route: 048
  3. SYMBICORT [Suspect]
     Dosage: 160/4.5 MCG, FREQUENCY UNKNOWN
     Route: 055

REACTIONS (13)
  - BRONCHITIS CHRONIC [None]
  - CARDIAC FAILURE CONGESTIVE [None]
  - BLOOD GLUCOSE INCREASED [None]
  - HIP FRACTURE [None]
  - MENTAL IMPAIRMENT [None]
  - CHRONIC SINUSITIS [None]
  - ADVERSE EVENT [None]
  - INTENTIONAL DRUG MISUSE [None]
  - WHEEZING [None]
  - GASTROOESOPHAGEAL REFLUX DISEASE [None]
  - SPINAL COLUMN STENOSIS [None]
  - CATARACT [None]
  - THROAT IRRITATION [None]
